FAERS Safety Report 9305095 (Version 3)
Quarter: 2013Q4

REPORT INFORMATION
  Report Type: Report from Study
  Country: BR (occurrence: BR)
  Receive Date: 20130523
  Receipt Date: 20131018
  Transmission Date: 20140711
  Serious: Yes (Hospitalization, Other)
  Sender: FDA-Public Use
  Company Number: BR-ROCHE-1196290

PATIENT
  Sex: Female
  Weight: 60 kg

DRUGS (10)
  1. MABTHERA [Suspect]
     Indication: RHEUMATOID ARTHRITIS
     Dosage: DATE OF LAST INFUSION: 04/OCT/2013
     Route: 042
     Dates: start: 20120904
  2. MABTHERA [Suspect]
     Indication: SJOGREN^S SYNDROME
  3. REUQUINOL [Concomitant]
  4. CYMBALTA [Concomitant]
     Indication: DEPRESSION
  5. NEXIUM [Concomitant]
     Indication: GASTRIC DISORDER
  6. DOMPERIDONE [Concomitant]
     Indication: GASTRIC DISORDER
  7. PURAN T4 [Concomitant]
     Indication: THYROID DISORDER
  8. BIOTENE DRY MOUTH [Concomitant]
     Indication: DRY MOUTH
  9. BIOTENE DRY MOUTH [Concomitant]
     Indication: DRY EYE
  10. CHLOROQUINE SULPHATE [Concomitant]
     Indication: GASTRIC DISORDER

REACTIONS (7)
  - Gastritis [Recovered/Resolved]
  - Gastric disorder [Unknown]
  - Gastric ulcer [Recovered/Resolved]
  - Gastrooesophageal reflux disease [Recovered/Resolved]
  - Drug ineffective [Unknown]
  - Dry eye [Unknown]
  - Lip dry [Unknown]
